FAERS Safety Report 21307445 (Version 7)
Quarter: 2023Q2

REPORT INFORMATION
  Report Type: Report from Study
  Country: CN (occurrence: CN)
  Receive Date: 20220908
  Receipt Date: 20230530
  Transmission Date: 20230721
  Serious: Yes (Life-Threatening)
  Sender: FDA-Public Use
  Company Number: CN-DSRSG-DS8201AU305_23045006_000001

PATIENT
  Age: 41 Year
  Sex: Female
  Weight: 55.3 kg

DRUGS (19)
  1. FAM-TRASTUZUMAB DERUXTECAN-NXKI [Suspect]
     Active Substance: FAM-TRASTUZUMAB DERUXTECAN-NXKI
     Indication: HER2 positive breast cancer
     Dosage: 5.4 MG/KG, ONCE EVERY 3 WK
     Route: 042
     Dates: start: 20220824, end: 20220824
  2. FAM-TRASTUZUMAB DERUXTECAN-NXKI [Suspect]
     Active Substance: FAM-TRASTUZUMAB DERUXTECAN-NXKI
     Dosage: 4.4 MG/KG, ONCE EVERY 3 WK
     Route: 042
     Dates: start: 20220921, end: 20220921
  3. FAM-TRASTUZUMAB DERUXTECAN-NXKI [Suspect]
     Active Substance: FAM-TRASTUZUMAB DERUXTECAN-NXKI
     Dosage: 4.4 MG/KG, ONCE EVERY 3 WK
     Route: 042
     Dates: start: 20221014, end: 20221014
  4. FAM-TRASTUZUMAB DERUXTECAN-NXKI [Suspect]
     Active Substance: FAM-TRASTUZUMAB DERUXTECAN-NXKI
     Dosage: 4.4 MG/KG, ONCE EVERY 3 WK
     Route: 042
     Dates: start: 20221102, end: 20221102
  5. FAM-TRASTUZUMAB DERUXTECAN-NXKI [Suspect]
     Active Substance: FAM-TRASTUZUMAB DERUXTECAN-NXKI
     Dosage: 4.4 MG/KG, ONCE EVERY 3 WK
     Route: 042
     Dates: start: 20221123, end: 20221123
  6. FAM-TRASTUZUMAB DERUXTECAN-NXKI [Suspect]
     Active Substance: FAM-TRASTUZUMAB DERUXTECAN-NXKI
     Dosage: 4.4 MG/KG, ONCE EVERY 3 WK
     Route: 042
     Dates: start: 20221214, end: 20221214
  7. FAM-TRASTUZUMAB DERUXTECAN-NXKI [Suspect]
     Active Substance: FAM-TRASTUZUMAB DERUXTECAN-NXKI
     Dosage: 4.4 MG/KG, ONCE EVERY 3 WK
     Route: 042
     Dates: start: 20230105, end: 20230105
  8. FAM-TRASTUZUMAB DERUXTECAN-NXKI [Suspect]
     Active Substance: FAM-TRASTUZUMAB DERUXTECAN-NXKI
     Dosage: 4.4 MG/KG, ONCE EVERY 3 WK
     Route: 042
     Dates: start: 20230208, end: 20230208
  9. FAM-TRASTUZUMAB DERUXTECAN-NXKI [Suspect]
     Active Substance: FAM-TRASTUZUMAB DERUXTECAN-NXKI
     Dosage: 4.4 MG/KG, ONCE EVERY 3 WK
     Route: 042
     Dates: start: 20230301, end: 20230301
  10. FAM-TRASTUZUMAB DERUXTECAN-NXKI [Suspect]
     Active Substance: FAM-TRASTUZUMAB DERUXTECAN-NXKI
     Dosage: 4.4 MG/KG, ONCE EVERY 3 WK
     Route: 042
     Dates: start: 20230322, end: 20230322
  11. FAM-TRASTUZUMAB DERUXTECAN-NXKI [Suspect]
     Active Substance: FAM-TRASTUZUMAB DERUXTECAN-NXKI
     Dosage: 4.4 MG/KG, ONCE EVERY 3 WK
     Route: 042
     Dates: start: 20230413, end: 20230413
  12. FAM-TRASTUZUMAB DERUXTECAN-NXKI [Suspect]
     Active Substance: FAM-TRASTUZUMAB DERUXTECAN-NXKI
     Dosage: 4.4 MG/KG, ONCE EVERY 3 WK
     Route: 042
     Dates: start: 20230506, end: 20230506
  13. GLYCYRRHIZIN [Concomitant]
     Active Substance: GLYCYRRHIZIN
     Indication: Aspartate aminotransferase increased
     Dosage: 50 MG, TID
     Route: 048
     Dates: start: 20220729, end: 20220805
  14. GLYCOCOLL [Concomitant]
     Indication: Alanine aminotransferase increased
     Dosage: 50 MG, TID
     Route: 048
     Dates: start: 20220729, end: 20220805
  15. METHIONINE [Concomitant]
     Active Substance: METHIONINE
     Indication: Alanine aminotransferase increased
     Dosage: 50 MG, TID
     Route: 048
     Dates: start: 20220729, end: 20220805
  16. ONDANSETRON HYDROCHLORIDE [Concomitant]
     Active Substance: ONDANSETRON HYDROCHLORIDE
     Indication: Vomiting
     Dosage: 4 MG, QD
     Route: 048
     Dates: start: 20220825, end: 20220825
  17. DIPHENHYDRAMINE HYDROCHLORIDE [Concomitant]
     Active Substance: DIPHENHYDRAMINE HYDROCHLORIDE
     Indication: Prophylaxis
     Dosage: 20 MG, SINGLE
     Route: 030
     Dates: start: 20220824, end: 20220824
  18. DEXAMETHASONE SODIUM PHOSPHATE [Concomitant]
     Active Substance: DEXAMETHASONE SODIUM PHOSPHATE
     Indication: Prophylaxis
     Dosage: 5 MG, ONCE
     Route: 042
     Dates: start: 20220824, end: 20220824
  19. LEUPROLIDE ACETATE [Concomitant]
     Active Substance: LEUPROLIDE ACETATE
     Indication: Endocrine disorder
     Dosage: 3.75 MG, ONCE
     Route: 058
     Dates: start: 20220812, end: 20220812

REACTIONS (1)
  - Platelet count decreased [Recovering/Resolving]

NARRATIVE: CASE EVENT DATE: 20220831
